FAERS Safety Report 20092620 (Version 3)
Quarter: 2021Q4

REPORT INFORMATION
  Report Type: Spontaneous
  Country: DE (occurrence: DE)
  Receive Date: 20211119
  Receipt Date: 20211223
  Transmission Date: 20220303
  Serious: Yes (Other)
  Sender: FDA-Public Use
  Company Number: None

PATIENT

DRUGS (13)
  1. PREGABALIN [Suspect]
     Active Substance: PREGABALIN
     Indication: Neuralgia
     Route: 048
     Dates: start: 20210628, end: 20210630
  2. PREGABALIN [Suspect]
     Active Substance: PREGABALIN
     Dosage: 25-150MG
     Route: 048
     Dates: start: 20210729
  3. DEXAMETHASONE [Suspect]
     Active Substance: DEXAMETHASONE
     Indication: Neuralgia
     Route: 048
     Dates: start: 20210601
  4. METOCLOPRAMIDE [Suspect]
     Active Substance: METOCLOPRAMIDE
     Indication: Neuralgia
     Route: 048
     Dates: start: 20210806, end: 20210829
  5. RISPERDAL [Suspect]
     Active Substance: RISPERIDONE
     Indication: Hallucination
     Route: 048
     Dates: start: 20210601, end: 20210627
  6. RISPERDAL [Suspect]
     Active Substance: RISPERIDONE
     Indication: Psychotic disorder
     Route: 048
     Dates: start: 20210628
  7. RISPERDAL [Suspect]
     Active Substance: RISPERIDONE
     Indication: Amnestic disorder
     Route: 065
  8. METAMIZOL [Suspect]
     Active Substance: METAMIZOLE SODIUM
     Indication: Product used for unknown indication
     Route: 048
     Dates: start: 20210629, end: 20210713
  9. METAMIZOL [Suspect]
     Active Substance: METAMIZOLE SODIUM
     Route: 048
     Dates: start: 20210628
  10. METAMIZOL [Suspect]
     Active Substance: METAMIZOLE SODIUM
     Route: 048
     Dates: start: 20210714
  11. TRAMADOL [Suspect]
     Active Substance: TRAMADOL
     Indication: Neuralgia
     Route: 048
     Dates: start: 20210805
  12. TRAMADOL [Suspect]
     Active Substance: TRAMADOL
     Route: 048
     Dates: start: 20210806, end: 20210812
  13. TRAMADOL [Suspect]
     Active Substance: TRAMADOL
     Route: 048
     Dates: start: 20210813

REACTIONS (3)
  - Gamma-glutamyltransferase increased [Recovering/Resolving]
  - Alanine aminotransferase increased [Recovering/Resolving]
  - Aspartate aminotransferase increased [Recovering/Resolving]

NARRATIVE: CASE EVENT DATE: 20210801
